FAERS Safety Report 7171080-8 (Version None)
Quarter: 2010Q4

REPORT INFORMATION
  Report Type: 
  Country: None (occurrence: None)
  Receive Date: 20101207
  Receipt Date: 20101129
  Transmission Date: 20110411
  Serious: Yes (Hospitalization)
  Sender: FDA-Public Use
  Company Number: CTI_01276_2010

PATIENT
  Sex: Male

DRUGS (1)
  1. SPECTRACEF [Suspect]
     Indication: BACTERIAL INFECTION
     Dosage: (400 MG ORAL)
     Route: 048
     Dates: start: 20100916, end: 20100916

REACTIONS (4)
  - CIRCUMORAL OEDEMA [None]
  - EPIGLOTTIC OEDEMA [None]
  - HYPERSENSITIVITY [None]
  - TONGUE OEDEMA [None]
